FAERS Safety Report 6734033-7 (Version None)
Quarter: 2010Q2

REPORT INFORMATION
  Report Type: 
  Country: None (occurrence: None)
  Receive Date: 20100520
  Receipt Date: 20100511
  Transmission Date: 20101027
  Serious: Yes (Death)
  Sender: FDA-Public Use
  Company Number: DK-NOVOPROD-308316

PATIENT
  Age: 62 Year
  Sex: Female

DRUGS (7)
  1. VICTOZA [Suspect]
     Indication: DRUG USE FOR UNKNOWN INDICATION
  2. GABAPENTIN [Concomitant]
     Indication: PAIN
     Dosage: 600 MG, QD
     Route: 048
  3. TRANDOLAPRIL [Concomitant]
     Indication: HYPERTENSION
     Dosage: 4 MG, QD
     Route: 048
  4. LANSOPRAZOL [Concomitant]
     Indication: DYSPEPSIA
     Dosage: 30-60
     Route: 048
  5. BENDROFLUMETHIAZIDE W/POTASSIUM CHLORIDE [Concomitant]
     Indication: HYPERTENSION
     Dosage: 2.5/573
     Route: 048
  6. SIMVASTATIN [Concomitant]
     Dosage: 40 MG, QD
     Route: 048
  7. FUROSEMIDE [Concomitant]
     Dosage: 40 MG, PRN
     Route: 048

REACTIONS (1)
  - DEATH [None]
